FAERS Safety Report 7812273-3 (Version None)
Quarter: 2011Q4

REPORT INFORMATION
  Report Type: 
  Country: None (occurrence: None)
  Receive Date: 20111013
  Receipt Date: 20111007
  Transmission Date: 20120403
  Serious: Yes (Other)
  Sender: FDA-Public Use
  Company Number: US-CELGENEUS-163-21880-11072974

PATIENT
  Sex: Female
  Weight: 45.4 kg

DRUGS (6)
  1. SPIRIVA [Concomitant]
     Indication: RESPIRATORY DISORDER
     Route: 065
  2. REVLIMID [Suspect]
     Dosage: 2.5 MILLIGRAM
     Route: 048
     Dates: start: 20110501
  3. ABILIFY [Concomitant]
     Indication: SCHIZOPHRENIA
     Dosage: 10 MILLIGRAM
     Route: 065
  4. NEXIUM [Concomitant]
     Indication: GASTRIC DISORDER
     Route: 065
  5. METFORMIN HYDROCHLORIDE [Concomitant]
     Dosage: 1000 MILLIGRAM
     Route: 048
  6. SIMVASTATIN [Concomitant]
     Dosage: 40 MILLIGRAM
     Route: 065

REACTIONS (5)
  - WEIGHT DECREASED [None]
  - OEDEMA PERIPHERAL [None]
  - CONFUSIONAL STATE [None]
  - PANCREATIC CARCINOMA METASTATIC [None]
  - DRUG INEFFECTIVE [None]
